FAERS Safety Report 7207349-8 (Version None)
Quarter: 2010Q4

REPORT INFORMATION
  Report Type: 
  Country: None (occurrence: None)
  Receive Date: 20101221
  Receipt Date: 20101207
  Transmission Date: 20110411
  Serious: Yes (Other)
  Sender: FDA-Public Use
  Company Number: US-1184380

PATIENT
  Sex: Female

DRUGS (1)
  1. DIFLUPREDNATE 0.05% OPHTHALMIC EMULSION [Suspect]
     Dosage: OPHTHALMIC
     Route: 047

REACTIONS (2)
  - CONJUNCTIVAL EROSION [None]
  - OFF LABEL USE [None]
